FAERS Safety Report 7817209-7 (Version None)
Quarter: 2011Q4

REPORT INFORMATION
  Report Type: 
  Country: None (occurrence: None)
  Receive Date: 20111017
  Receipt Date: 20111013
  Transmission Date: 20120403
  Serious: Yes (Death, Other)
  Sender: FDA-Public Use
  Company Number: PHEH2009US09085

PATIENT
  Sex: Female

DRUGS (3)
  1. AREDIA [Suspect]
  2. PAMIDRONATE DISODIUM [Suspect]
  3. ZOMETA [Suspect]

REACTIONS (15)
  - OSTEONECROSIS OF JAW [None]
  - EMOTIONAL DISTRESS [None]
  - OVERDOSE [None]
  - INFECTION [None]
  - RENAL FAILURE CHRONIC [None]
  - INJURY [None]
  - BONE LOSS [None]
  - DEFORMITY [None]
  - PERIODONTAL DISEASE [None]
  - GINGIVITIS [None]
  - CEREBROVASCULAR ACCIDENT [None]
  - PAIN [None]
  - DISABILITY [None]
  - ANXIETY [None]
  - MULTIPLE MYELOMA [None]
